FAERS Safety Report 9054900 (Version 1)
Quarter: 2013Q1

REPORT INFORMATION
  Report Type: Report from Study
  Country: GB (occurrence: GB)
  Receive Date: 20130208
  Receipt Date: 20130208
  Transmission Date: 20140127
  Serious: Yes (Other)
  Sender: FDA-Public Use
  Company Number: GB-ASTELLAS-2013EU001002

PATIENT
  Age: 66 None
  Sex: Male
  Weight: 80 kg

DRUGS (3)
  1. ENZALUTAMIDE [Suspect]
     Indication: PROSTATE CANCER METASTATIC
     Dosage: 160 MG, UID/QD
     Route: 048
     Dates: start: 20121223, end: 20130127
  2. ASPIRIN [Concomitant]
     Dosage: 75 MG, UID/QD
     Route: 048
  3. ATORVASTATIN [Concomitant]
     Dosage: UNK
     Route: 048

REACTIONS (3)
  - Vision blurred [Not Recovered/Not Resolved]
  - Somnolence [Not Recovered/Not Resolved]
  - Transient ischaemic attack [Recovered/Resolved]
